FAERS Safety Report 20448269 (Version 5)
Quarter: 2022Q4

REPORT INFORMATION
  Report Type: Other
  Country: DE (occurrence: None)
  Receive Date: 20220209
  Receipt Date: 20221116
  Transmission Date: 20230113
  Serious: No
  Sender: FDA-Public Use
  Company Number: DE-ROCHE-2658828

PATIENT
  Age: 38 Year
  Sex: Female

DRUGS (4)
  1. OCREVUS [Suspect]
     Active Substance: OCRELIZUMAB
     Indication: Relapsing-remitting multiple sclerosis
     Route: 042
     Dates: start: 20200807
  2. OCREVUS [Suspect]
     Active Substance: OCRELIZUMAB
     Route: 042
     Dates: start: 20210802
  3. CANDESARTAN [Concomitant]
     Active Substance: CANDESARTAN
  4. VITAMIN D3 [Concomitant]
     Active Substance: CHOLECALCIFEROL

REACTIONS (8)
  - Dizziness [Recovered/Resolved]
  - Fatigue [Recovered/Resolved]
  - Paraesthesia [Not Recovered/Not Resolved]
  - Headache [Recovered/Resolved]
  - Listless [Recovered/Resolved]
  - COVID-19 [Recovered/Resolved]
  - Cardiovascular disorder [Recovered/Resolved]
  - Rash pruritic [Recovered/Resolved]

NARRATIVE: CASE EVENT DATE: 20200807
